FAERS Safety Report 6213601-5 (Version None)
Quarter: 2009Q2

REPORT INFORMATION
  Report Type: 
  Country: None (occurrence: None)
  Receive Date: 20090603
  Receipt Date: 20090522
  Transmission Date: 20091009
  Serious: Yes (Other)
  Sender: FDA-Public Use
  Company Number: JP-PFIZER INC-2009218548

PATIENT
  Age: 65 Year

DRUGS (1)
  1. MYCOBUTIN [Suspect]
     Dosage: UNK
     Route: 048
     Dates: start: 20081101

REACTIONS (1)
  - POLYMYALGIA RHEUMATICA [None]
